FAERS Safety Report 25924209 (Version 1)
Quarter: 2025Q4

REPORT INFORMATION
  Report Type: Spontaneous
  Country: EU (occurrence: EU)
  Receive Date: 20251015
  Receipt Date: 20251015
  Transmission Date: 20260118
  Serious: Yes (Other)
  Sender: DR REDDYS
  Company Number: None

PATIENT
  Age: 56 Year
  Sex: Male

DRUGS (6)
  1. DOXORUBICIN [Suspect]
     Active Substance: DOXORUBICIN
     Indication: Primary effusion lymphoma
     Dosage: COMPLETED 6 CYCLES OF R-CHOP
  2. RITUXIMAB [Concomitant]
     Active Substance: RITUXIMAB
     Indication: Primary effusion lymphoma
     Dosage: COMPLETED 6 CYCLES OF R-CHOP
  3. CYCLOPHOSPHAMIDE [Concomitant]
     Active Substance: CYCLOPHOSPHAMIDE
     Indication: Primary effusion lymphoma
     Dosage: COMPLETED 6 CYCLES OF R-CHOP
  4. VINCRISTINE [Concomitant]
     Active Substance: VINCRISTINE
     Indication: Primary effusion lymphoma
     Dosage: COMPLETED 6 CYCLES OF R-CHOP
  5. PREDNISONE [Concomitant]
     Active Substance: PREDNISONE
     Indication: Primary effusion lymphoma
     Dosage: COMPLETED 6 CYCLES OF R-CHOP
  6. EVEROLIMUS [Concomitant]
     Active Substance: EVEROLIMUS
     Indication: Immunosuppressant drug therapy

REACTIONS (2)
  - Febrile neutropenia [Unknown]
  - Neurotoxicity [Unknown]

NARRATIVE: CASE EVENT DATE: 20250101
